FAERS Safety Report 8599440-9 (Version None)
Quarter: 2012Q3

REPORT INFORMATION
  Report Type: 
  Country: None (occurrence: None)
  Receive Date: 20120816
  Receipt Date: 20120814
  Transmission Date: 20120928
  Serious: Yes (Other)
  Sender: FDA-Public Use
  Company Number: US-JNJFOC-20120403660

PATIENT
  Sex: Female

DRUGS (19)
  1. ADRIAMYCIN PFS [Suspect]
     Dosage: CYCLE 3
     Route: 042
  2. ADRIAMYCIN PFS [Suspect]
     Dosage: CYCLE 4
     Route: 042
  3. DOCETAXEL [Suspect]
     Dosage: CYCLE 4
     Route: 042
  4. ADRIAMYCIN PFS [Suspect]
     Dosage: CYCLE 2
     Route: 042
  5. NOV-002 [Suspect]
     Route: 042
  6. DOXORUBICIN HYDROCHLORIDE [Suspect]
     Dosage: CYCLE 3
     Route: 042
  7. CYCLOPHOSPHAMIDE [Suspect]
     Dosage: CYCLE 4
     Route: 042
  8. DOCETAXEL [Suspect]
     Indication: BREAST CANCER
     Dosage: CYCLE 3
     Route: 042
  9. DOCETAXEL [Suspect]
     Dosage: CYCLE 2
     Route: 042
  10. DOXORUBICIN HYDROCHLORIDE [Suspect]
     Indication: BREAST CANCER
     Dosage: CYCLE 4
     Route: 042
  11. CYCLOPHOSPHAMIDE [Suspect]
     Indication: BREAST CANCER
     Dosage: CYCLE 3
     Route: 042
  12. DOXORUBICIN HYDROCHLORIDE [Suspect]
     Dosage: CYCLE 1
     Route: 042
  13. ADRIAMYCIN PFS [Suspect]
     Indication: BREAST CANCER
     Dosage: CYCLE 1
     Route: 042
  14. CYCLOPHOSPHAMIDE [Suspect]
     Dosage: CYCLE 1
     Route: 042
  15. NOV-002 [Suspect]
     Indication: BREAST CANCER
     Dosage: ADMINISTERED APPROXIMATELY 3 HR APART
     Route: 042
  16. NOV-002 [Suspect]
     Route: 058
  17. DOXORUBICIN HYDROCHLORIDE [Suspect]
     Dosage: CYCLE 2
     Route: 042
  18. CYCLOPHOSPHAMIDE [Suspect]
     Dosage: CYCLE 2
     Route: 042
  19. DOCETAXEL [Suspect]
     Dosage: CYCLE 1
     Route: 042

REACTIONS (10)
  - NEUTROPENIA [None]
  - PERIPHERAL SENSORY NEUROPATHY [None]
  - FEBRILE NEUTROPENIA [None]
  - DIARRHOEA [None]
  - CONSTIPATION [None]
  - PALMAR-PLANTAR ERYTHRODYSAESTHESIA SYNDROME [None]
  - VOMITING [None]
  - NAUSEA [None]
  - ABDOMINAL PAIN [None]
  - FATIGUE [None]
